FAERS Safety Report 23952927 (Version 2)
Quarter: 2024Q3

REPORT INFORMATION
  Report Type: Spontaneous
  Country: ZA (occurrence: ZA)
  Receive Date: 20240608
  Receipt Date: 20240711
  Transmission Date: 20241017
  Serious: Yes (Death)
  Sender: ABBVIE
  Company Number: ZA-ABBOTT-2024A-1382461

PATIENT
  Age: 79 Year
  Sex: Male

DRUGS (25)
  1. CREON [Suspect]
     Active Substance: PANCRELIPASE AMYLASE\PANCRELIPASE LIPASE\PANCRELIPASE PROTEASE
     Indication: Pancreatic failure
     Dosage: 150 MG DIRECTIONS TAKE ONE CAPSULE DAILY EVERY 8 HOURS AFTER MEAL,?CREON 10000 150 MG OF PANCREAT...
     Route: 048
  2. Torsinat [Concomitant]
     Indication: Hypertension
     Dosage: 2.5 MG DIRECTIONS TAKE ONE TABLET DAILY
     Route: 065
  3. Torsinat [Concomitant]
     Indication: Hypertension
     Dosage: 10 MG DIRECTIONS TAKE ONE TABLET DAILY
     Route: 065
  4. ALLOPURINOL [Concomitant]
     Active Substance: ALLOPURINOL
     Indication: Gout
     Dosage: 100 MG DIRECTIONS TAKE TWO TABLETS DAILY ORALLY
     Route: 048
  5. Albumax [Concomitant]
     Indication: Product used for unknown indication
     Dosage: DIRECTIONS TAKE AS DIRECTED PER INSTRUCTIONS SHEET
  6. PREDNISONE [Concomitant]
     Active Substance: PREDNISONE
     Indication: Product used for unknown indication
     Dosage: 5 MG DIRECTIONS TAKE SIX TABLETS IN THE MORNING ORALLY AFTER MEAL
     Route: 048
  7. CEROXIM [Concomitant]
     Indication: Product used for unknown indication
     Dosage: 500 MG DIRECTIONS TAKE ONE TABLET TWICE A DAY ORALLY AFTERMEAL S -ANT
     Route: 048
  8. POTASSIUM CHLORIDE [Concomitant]
     Active Substance: POTASSIUM CHLORIDE
     Indication: Hypokalaemia
     Dosage: 600 MG DIRECTIONS TAKE ONE TABLET DAILY?SR
     Route: 065
  9. TORSEMIDE [Concomitant]
     Active Substance: TORSEMIDE
     Indication: Cardiac failure
     Dosage: 5 MG DIRECTIONS TAKE ONE TABLET DAILY ORALLY
     Route: 048
  10. SIMVASTATIN [Concomitant]
     Active Substance: SIMVASTATIN
     Indication: Blood cholesterol abnormal
     Dosage: 10 MG DIRECTIONS TAKE ONE TABLET AT NIGHT ORALLY {LAST REPEAT}
     Route: 048
  11. Syndol [Concomitant]
     Indication: Product used for unknown indication
     Dosage: DIRECTIONS AS PER PACKAGE INSERT
  12. Spiractin [Concomitant]
     Indication: Oedema
     Dosage: 25 MG DIRECTIONS TAKE HALF A TABLET DAILY
     Route: 065
  13. A LENNON VITAMIN B COMPLEX [Concomitant]
     Indication: Product used for unknown indication
     Dosage: DIRECTIONS SPUIT 1ML MAANDELIKS
  14. XARELTO [Concomitant]
     Active Substance: RIVAROXABAN
     Indication: Anticoagulant therapy
     Dosage: 20 MG DIRECTIONS TAKE ONE TABLET TWICE A DAY
     Route: 065
  15. QUETIAPINE [Concomitant]
     Active Substance: QUETIAPINE
     Indication: Bipolar disorder
     Dosage: 25 MG DIRECTIONS TAKE ONE TABLET DAILY ORALLY-RX30
     Route: 048
  16. IRON POLYMALTOSE [Concomitant]
     Active Substance: IRON POLYMALTOSE
     Indication: Product used for unknown indication
     Dosage: DIRECTIONS AS PER PACKAGE INSERT? CHTABS
  17. A LENNON VITAMIN B COMPLEX [Concomitant]
     Indication: Product used for unknown indication
     Dosage: DIRECTIONS INJECT 1ML MONTHLY
  18. PRADAXA [Concomitant]
     Active Substance: DABIGATRAN ETEXILATE MESYLATE
     Indication: Pulmonary embolism
     Dosage: 110 MG DIRECTIONS TAKE ONE CAPSULE DAILY
     Route: 048
  19. ONDANSETRON HYDROCHLORIDE [Concomitant]
     Active Substance: ONDANSETRON HYDROCHLORIDE
     Indication: Product used for unknown indication
     Dosage: DIRECTIONS DISPERSE ONE TABLET UNDER THE TONGUE THREE TIME?RAPITAB
     Route: 065
  20. ENTIRO [Concomitant]
     Indication: Product used for unknown indication
     Dosage: DIRECTIONS TAKE ONE CAPSULE TWICE A DAY ORALLY
     Route: 048
  21. STILLEN [Concomitant]
     Indication: Product used for unknown indication
     Dosage: 60 MG DIRECTIONS TAKE ONE TABLET TWICE A DAY ORALLY
     Route: 048
  22. DONEPEZIL HYDROCHLORIDE [Concomitant]
     Active Substance: DONEPEZIL HYDROCHLORIDE
     Indication: Dementia
     Dosage: 10 MG DIRECTIONS TAKE ONE TABLET DAILY
     Route: 065
  23. MAGNESIUM CHLORIDE [Concomitant]
     Active Substance: MAGNESIUM CHLORIDE
     Indication: Product used for unknown indication
     Dosage: DIRECTIONS TAKE ONE DISSOLVED IN WATER DAILY?FIZZY
  24. MAGNESIUM CHLORIDE [Concomitant]
     Active Substance: MAGNESIUM CHLORIDE
     Indication: Product used for unknown indication
     Dosage: DIRECTIONS TAKE ONE CAPSULE DAILY ORALLY
     Route: 048
  25. DS 24 [Concomitant]
     Indication: Product used for unknown indication
     Dosage: DIRECTIONS TAKE ONE CAPSULE ORALLY AS DIRECTED
     Route: 048

REACTIONS (1)
  - COVID-19 [Fatal]
